FAERS Safety Report 8946176 (Version 2)
Quarter: 2013Q1

REPORT INFORMATION
  Report Type: Spontaneous
  Country: US (occurrence: US)
  Receive Date: 20121204
  Receipt Date: 20130204
  Transmission Date: 20140127
  Serious: No
  Sender: FDA-Public Use
  Company Number: US-AMGEN-USASP2012072094

PATIENT
  Age: 42 Year
  Sex: Female
  Weight: 123.36 kg

DRUGS (2)
  1. ENBREL [Suspect]
     Indication: PSORIATIC ARTHROPATHY
     Dosage: 50 MG, QWK
     Route: 058
     Dates: start: 20121029, end: 20121217
  2. ENBREL [Suspect]
     Indication: PSORIASIS

REACTIONS (5)
  - Pruritus generalised [Not Recovered/Not Resolved]
  - Furuncle [Not Recovered/Not Resolved]
  - Injection site erythema [Not Recovered/Not Resolved]
  - Injection site induration [Not Recovered/Not Resolved]
  - Injection site nodule [Not Recovered/Not Resolved]
